FAERS Safety Report 4941783-1 (Version None)
Quarter: 2006Q1

REPORT INFORMATION
  Report Type: 
  Country: None (occurrence: None)
  Receive Date: 20060307
  Receipt Date: 20060227
  Transmission Date: 20060701
  Serious: Yes (Other)
  Sender: FDA-Public Use
  Company Number: 13563

PATIENT

DRUGS (1)
  1. PACLITAXEL [Suspect]
     Indication: PROSTATE CANCER METASTATIC

REACTIONS (1)
  - TUMOUR LYSIS SYNDROME [None]
